FAERS Safety Report 11789088 (Version 1)
Quarter: 2015Q4

REPORT INFORMATION
  Report Type: Spontaneous
  Country: GB (occurrence: GB)
  Receive Date: 20151201
  Receipt Date: 20151201
  Transmission Date: 20160305
  Serious: Yes (Other)
  Sender: FDA-Public Use
  Company Number: GB-AUROBINDO-AUR-APL-2015-10376

PATIENT
  Age: 57 Year
  Sex: Female
  Weight: 57.15 kg

DRUGS (4)
  1. CALCICHEW [Concomitant]
     Active Substance: CALCIUM CARBONATE
     Indication: PRODUCT USED FOR UNKNOWN INDICATION
     Route: 065
  2. OMEPRAZOLE. [Concomitant]
     Active Substance: OMEPRAZOLE
     Indication: PRODUCT USED FOR UNKNOWN INDICATION
     Route: 065
  3. AMOXICILLIN. [Suspect]
     Active Substance: AMOXICILLIN
     Indication: LOWER RESPIRATORY TRACT INFECTION
     Dosage: 1 DF, 3 TIMES A DAY
     Route: 048
     Dates: start: 20151011, end: 20151018
  4. PRAVASTATIN [Concomitant]
     Active Substance: PRAVASTATIN\PRAVASTATIN SODIUM
     Indication: PRODUCT USED FOR UNKNOWN INDICATION
     Route: 065

REACTIONS (7)
  - Hypersensitivity [Unknown]
  - Skin warm [Recovered/Resolved]
  - Rash erythematous [Recovered/Resolved]
  - Body temperature increased [Unknown]
  - Pruritus [Recovered/Resolved]
  - Condition aggravated [Unknown]
  - Heart rate increased [Unknown]

NARRATIVE: CASE EVENT DATE: 20151019
